FAERS Safety Report 12909609 (Version 1)
Quarter: 2016Q4

REPORT INFORMATION
  Report Type: Report from Study
  Country: US (occurrence: US)
  Receive Date: 20161104
  Receipt Date: 20161104
  Transmission Date: 20170207
  Serious: Yes (Death, Other)
  Sender: FDA-Public Use
  Company Number: US-ROCHE-1850476

PATIENT
  Sex: Male

DRUGS (2)
  1. CAPECITABINE. [Suspect]
     Active Substance: CAPECITABINE
     Indication: MESOTHELIOMA
     Route: 048
  2. TACEDINALINE [Suspect]
     Active Substance: TACEDINALINE
     Indication: MESOTHELIOMA
     Route: 065

REACTIONS (3)
  - Hypotension [Unknown]
  - Death [Fatal]
  - Respiratory distress [Unknown]
